FAERS Safety Report 24009287 (Version 1)
Quarter: 2024Q2

REPORT INFORMATION
  Report Type: Spontaneous
  Country: TW (occurrence: TW)
  Receive Date: 20240625
  Receipt Date: 20240625
  Transmission Date: 20240715
  Serious: Yes (Other)
  Sender: FDA-Public Use
  Company Number: TW-MYLANLABS-2024M1057219

PATIENT
  Age: 51 Year
  Sex: Male

DRUGS (12)
  1. METHOTREXATE [Suspect]
     Active Substance: METHOTREXATE
     Indication: Squamous cell carcinoma of head and neck
     Dosage: 40 MILLIGRAM/SQ. METER, QW
     Route: 065
  2. PACLITAXEL [Suspect]
     Active Substance: PACLITAXEL
     Indication: Squamous cell carcinoma of head and neck
     Dosage: 80 MILLIGRAM/SQ. METER (RECEIVED ON DAY1 , DAY 8, 21 DAYS A CYCLE)
     Route: 065
  3. VINORELBINE [Suspect]
     Active Substance: VINORELBINE TARTRATE
     Indication: Squamous cell carcinoma of head and neck
     Dosage: 20 MILLIGRAM/SQ. METER
     Route: 065
  4. PEMBROLIZUMAB [Concomitant]
     Active Substance: PEMBROLIZUMAB
     Indication: Squamous cell carcinoma of head and neck
     Dosage: UNK
     Route: 065
     Dates: start: 2020, end: 202010
  5. CETUXIMAB [Concomitant]
     Active Substance: CETUXIMAB
     Indication: Squamous cell carcinoma of head and neck
     Dosage: 400 MILLIGRAM/SQ. METER (RECEIVED LOADING DOSE)
     Route: 065
  6. CETUXIMAB [Concomitant]
     Active Substance: CETUXIMAB
     Dosage: 250 MILLIGRAM/SQ. METER, QW
     Route: 065
  7. CETUXIMAB [Concomitant]
     Active Substance: CETUXIMAB
     Dosage: 250 MILLIGRAM/SQ. METER, QW
     Route: 065
  8. AFATINIB [Concomitant]
     Active Substance: AFATINIB
     Indication: Squamous cell carcinoma of head and neck
     Dosage: 40 MILLIGRAM, QD
     Route: 065
  9. ETOPOSIDE [Concomitant]
     Active Substance: ETOPOSIDE
     Indication: Squamous cell carcinoma of head and neck
     Dosage: 70 MILLIGRAM/SQ. METER (RECEIVED ON DAY 1, DAY 2, DAY 3, 21 DAYS A CYCLE)
     Route: 065
  10. GEMCITABINE [Concomitant]
     Active Substance: GEMCITABINE
     Indication: Squamous cell carcinoma of head and neck
     Dosage: 800 MILLIGRAM/SQ. METER (RECEIVED ON DAY 1, DAY 8, 21 DAYS A CYCLE)
     Route: 065
  11. CISPLATIN [Concomitant]
     Active Substance: CISPLATIN
     Indication: Squamous cell carcinoma
     Dosage: 35 MILLIGRAM/SQ. METER (RECEIVED ON DAY  1 AND DAY 8, 21 DAYS A CYCLE)
     Route: 065
  12. CISPLATIN [Concomitant]
     Active Substance: CISPLATIN
     Indication: Squamous cell carcinoma of head and neck

REACTIONS (2)
  - Drug ineffective for unapproved indication [Unknown]
  - Off label use [Unknown]
